FAERS Safety Report 5598292-9 (Version None)
Quarter: 2008Q1

REPORT INFORMATION
  Report Type: 
  Country: None (occurrence: None)
  Receive Date: 20080122
  Receipt Date: 20080115
  Transmission Date: 20080703
  Serious: Yes (Hospitalization)
  Sender: FDA-Public Use
  Company Number: FR-AVENTIS-200810307EU

PATIENT
  Age: 71 Year
  Sex: Male

DRUGS (1)
  1. FLUDEX                             /00340101/ [Suspect]
     Indication: HYPERTENSION
     Dosage: DOSE: UNK
     Route: 048

REACTIONS (1)
  - RENAL FAILURE ACUTE [None]
